FAERS Safety Report 14158684 (Version 1)
Quarter: 2017Q4

REPORT INFORMATION
  Report Type: Spontaneous
  Country: PT (occurrence: PT)
  Receive Date: 20171103
  Receipt Date: 20171103
  Transmission Date: 20180321
  Serious: Yes (Hospitalization)
  Sender: FDA-Public Use
  Company Number: PT-CELGENEUS-PRT-20171008252

PATIENT
  Age: 71 Year
  Sex: Male

DRUGS (1)
  1. VIDAZA [Suspect]
     Active Substance: AZACITIDINE
     Indication: ACUTE MYELOID LEUKAEMIA
     Dosage: 100 MILLIGRAM
     Route: 058

REACTIONS (2)
  - Subcutaneous haematoma [Recovered/Resolved]
  - Chloroma [Not Recovered/Not Resolved]
